FAERS Safety Report 5958216-9 (Version None)
Quarter: 2008Q4

REPORT INFORMATION
  Report Type: 
  Country: None (occurrence: None)
  Receive Date: 20081117
  Receipt Date: 20081117
  Transmission Date: 20090506
  Serious: Yes (Life-Threatening, Hospitalization, Disabling, Other)
  Sender: FDA-Public Use
  Company Number: None

PATIENT
  Age: 37 Year
  Sex: Female
  Weight: 74.8435 kg

DRUGS (3)
  1. LEVAQUIN [Suspect]
     Indication: PNEUMONIA
     Dosage: 500MG 500MG IV
     Route: 042
     Dates: start: 20080104, end: 20080117
  2. LEVAQUIN [Suspect]
     Indication: URINARY TRACT INFECTION
     Dosage: 500MG 500MG IV
     Route: 042
     Dates: start: 20080104, end: 20080117
  3. LEVAQUIN [Suspect]
     Indication: HEADACHE
     Dosage: 750MG 750MG PO
     Route: 048
     Dates: start: 20080417, end: 20080513

REACTIONS (17)
  - AGGRESSION [None]
  - BACK DISORDER [None]
  - CERVICOBRACHIAL SYNDROME [None]
  - ELECTROCARDIOGRAM QT PROLONGED [None]
  - HEADACHE [None]
  - HEART RATE INCREASED [None]
  - HYPOTENSION [None]
  - ILL-DEFINED DISORDER [None]
  - JOINT SPRAIN [None]
  - LUMBAR RADICULOPATHY [None]
  - MUSCLE STRAIN [None]
  - MUSCLE TIGHTNESS [None]
  - MUSCULOSKELETAL STIFFNESS [None]
  - PERIARTHRITIS [None]
  - ROTATOR CUFF SYNDROME [None]
  - SUICIDAL IDEATION [None]
  - TENDONITIS [None]
